FAERS Safety Report 6530070-6 (Version None)
Quarter: 2010Q1

REPORT INFORMATION
  Report Type: 
  Country: None (occurrence: None)
  Receive Date: 20100107
  Receipt Date: 20100104
  Transmission Date: 20100710
  Serious: Yes (Hospitalization)
  Sender: FDA-Public Use
  Company Number: US-MERCK-1001USA00072

PATIENT
  Age: 61 Year
  Sex: Male

DRUGS (8)
  1. JANUVIA [Suspect]
     Indication: TYPE 2 DIABETES MELLITUS
     Route: 048
     Dates: start: 20081201
  2. POTASSIUM (UNSPECIFIED) [Concomitant]
     Route: 065
  3. DIAZEPAN [Concomitant]
     Route: 065
  4. SIMVASTATIN [Concomitant]
     Route: 065
  5. PLAVIX [Concomitant]
     Route: 065
  6. COUMADIN [Concomitant]
     Route: 065
  7. GLYBURIDE [Concomitant]
     Route: 065
  8. TRICOR [Concomitant]
     Route: 065

REACTIONS (1)
  - THROMBOSIS [None]
